FAERS Safety Report 6266825-5 (Version None)
Quarter: 2009Q3

REPORT INFORMATION
  Report Type: 
  Country: None (occurrence: None)
  Receive Date: 20090714
  Receipt Date: 20090710
  Transmission Date: 20100115
  Serious: Yes (Other)
  Sender: FDA-Public Use
  Company Number: US-JNJFOC-20090605140

PATIENT
  Sex: Female

DRUGS (1)
  1. LEVAQUIN [Suspect]
     Indication: PNEUMONIA
     Dosage: IN WINTER
     Route: 048

REACTIONS (4)
  - ARTHRALGIA [None]
  - LIGAMENT RUPTURE [None]
  - ROTATOR CUFF SYNDROME [None]
  - TENDON RUPTURE [None]
